FAERS Safety Report 5717245-0 (Version None)
Quarter: 2008Q2

REPORT INFORMATION
  Report Type: 
  Country: None (occurrence: None)
  Receive Date: 20080423
  Receipt Date: 20080407
  Transmission Date: 20081010
  Serious: Yes (Death, Hospitalization)
  Sender: FDA-Public Use
  Company Number: 002#2#2008-00224

PATIENT
  Age: 79 Year
  Sex: Female
  Weight: 68.0396 kg

DRUGS (3)
  1. NEUPRO [Suspect]
     Indication: PARKINSON'S DISEASE
     Dosage: 2MG/24H, 1 IN 1 D, TRANSDERMAL, 4MG/24H, 1 IN 1 D, TRANSDERMAL, 6MG/24H, 1 IN 1 D, TRANSDERMAL,4MG/2
     Route: 062
     Dates: end: 20080327
  2. NEUPRO [Suspect]
     Indication: PARKINSON'S DISEASE
     Dosage: 2MG/24H, 1 IN 1 D, TRANSDERMAL, 4MG/24H, 1 IN 1 D, TRANSDERMAL, 6MG/24H, 1 IN 1 D, TRANSDERMAL,4MG/2
     Route: 062
     Dates: start: 20080327, end: 20080331
  3. SINEMET [Concomitant]

REACTIONS (3)
  - DYSPHAGIA [None]
  - DYSPNOEA [None]
  - PHARMACEUTICAL PRODUCT COMPLAINT [None]
